FAERS Safety Report 4288621-0 (Version None)
Quarter: 2004Q1

REPORT INFORMATION
  Report Type: 
  Country: None (occurrence: None)
  Receive Date: 20040209
  Receipt Date: 20040127
  Transmission Date: 20041129
  Serious: Yes (Other)
  Sender: FDA-Public Use
  Company Number: ES-GLAXOSMITHKLINE-B0321501A

PATIENT
  Sex: Male

DRUGS (1)
  1. ZYNTABAC [Suspect]

REACTIONS (1)
  - PARKINSONISM [None]
